FAERS Safety Report 20002584 (Version 2)
Quarter: 2024Q3

REPORT INFORMATION
  Report Type: Spontaneous
  Country: DE (occurrence: DE)
  Receive Date: 20211027
  Receipt Date: 20240722
  Transmission Date: 20241016
  Serious: Yes (Death, Other)
  Sender: TEVA
  Company Number: None

PATIENT
  Age: 73 Year
  Sex: Female
  Weight: 81.2 kg

DRUGS (12)
  1. BACLOFEN [Suspect]
     Active Substance: BACLOFEN
     Indication: Product used for unknown indication
     Dosage: 25MG  1 - 0.5 - 1, BACLOFEN RATIOPHARM
     Route: 065
     Dates: start: 201404, end: 201505
  2. TORSEMIDE [Suspect]
     Active Substance: TORSEMIDE
     Indication: Product used for unknown indication
     Dosage: 1 - 0 - 0, TORASEMID 10
     Route: 065
     Dates: start: 201310, end: 201505
  3. FENTANYL [Suspect]
     Active Substance: FENTANYL\FENTANYL CITRATE
     Indication: Product used for unknown indication
     Dosage: EVERY 3 DAYS, FENTANYL 25
     Route: 065
     Dates: start: 201407, end: 201505
  4. XARELTO [Suspect]
     Active Substance: RIVAROXABAN
     Indication: Product used for unknown indication
     Dosage: 1 - 0 - 0, XARELTO 15
     Route: 065
     Dates: start: 201403, end: 201505
  5. AMLODIPINE [Suspect]
     Active Substance: AMLODIPINE BESYLATE
     Indication: Product used for unknown indication
     Dosage: AMLODIPIN 10
     Route: 065
  6. ASPIRIN [Suspect]
     Active Substance: ASPIRIN
     Indication: Product used for unknown indication
     Dosage: 1-0-0, ASS 100
     Route: 065
     Dates: start: 201308, end: 201505
  7. RAMIPRIL [Suspect]
     Active Substance: RAMIPRIL
     Indication: Product used for unknown indication
     Dosage: 1 - 0 - 1, RAMIPRIL 5
     Route: 065
     Dates: start: 201308, end: 201505
  8. PANTOPRAZOLE [Suspect]
     Active Substance: PANTOPRAZOLE
     Indication: Product used for unknown indication
     Dosage: 1- 0 - 0, PANTOPRAZOL 40
     Route: 065
     Dates: start: 201403, end: 201505
  9. SIMVASTATIN [Suspect]
     Active Substance: SIMVASTATIN
     Indication: Product used for unknown indication
     Dosage: 0 - 0 - 1, SIMVASTATIN 40
     Route: 065
     Dates: start: 201401, end: 201505
  10. MOVICOL [Suspect]
     Active Substance: POLYETHYLENE GLYCOL 3350\POTASSIUM CHLORIDE\SODIUM BICARBONATE\SODIUM CHLORIDE
     Indication: Product used for unknown indication
     Route: 065
     Dates: start: 201308, end: 201505
  11. GABAPENTIN [Suspect]
     Active Substance: GABAPENTIN
     Indication: Product used for unknown indication
     Dosage: 300 MG  1 - 0 - 1, GABAPENTIN 300
     Route: 065
     Dates: start: 201403, end: 201505
  12. ACTRAPHANE [Suspect]
     Active Substance: INSULIN HUMAN
     Indication: Type 2 diabetes mellitus
     Dosage: 18 - 8, ACTRAPHANE 30
     Route: 065
     Dates: start: 201401, end: 201505

REACTIONS (8)
  - Hyperglycaemia [Fatal]
  - Sinusitis [Fatal]
  - Lactic acidosis [Fatal]
  - Dehydration [Fatal]
  - Pneumonia aspiration [Fatal]
  - Renal failure [Fatal]
  - Urosepsis [Fatal]
  - Septic shock [Fatal]

NARRATIVE: CASE EVENT DATE: 20150101
